FAERS Safety Report 8924958 (Version 2)
Quarter: 2012Q4

REPORT INFORMATION
  Report Type: 
  Country: US (occurrence: US)
  Receive Date: 20121126
  Receipt Date: 20121220
  Transmission Date: 20130627
  Serious: Yes (Hospitalization, Other)
  Sender: FDA-Public Use
  Company Number: US-BAYER-2012-122003

PATIENT
  Age: 29 Year
  Sex: Female
  Weight: 204.8 kg

DRUGS (11)
  1. YAZ [Suspect]
  2. OCELLA [Suspect]
     Indication: MENORRHAGIA
  3. ZARAH [Suspect]
  4. IBUPROFEN [Concomitant]
     Dosage: 600 mg, PRN
     Dates: start: 20110316
  5. IRON [Concomitant]
     Indication: ANEMIA
     Dosage: 1 TID (interpreted as three times daily) [per MR], 325 mg [per PR]
     Route: 048
  6. DOC-Q-LACE [Concomitant]
     Dosage: 100 mg, UNK
  7. SUMATRIPTAN SUCCINATE [Concomitant]
     Dosage: 100 mg, UNK
  8. LISINOPRIL/HYDROCHLOROTHIAZIDE [Concomitant]
     Indication: HYPERTENSION
     Dosage: UNK
     Dates: start: 20110316
  9. LISINOPRIL/HYDROCHLOROTHIAZIDE [Concomitant]
     Indication: HYPERTENSION
     Dosage: UNK
     Dates: start: 20110316
  10. REGLAN [Concomitant]
     Dosage: 5 mg, UNK
     Dates: start: 20110316
  11. COLACE [Concomitant]
     Indication: CONSTIPATION
     Dosage: daily
     Route: 048
     Dates: start: 20110311

REACTIONS (3)
  - Pulmonary embolism [None]
  - Cholelithiasis [None]
  - Off label use [None]
